FAERS Safety Report 4780564-9 (Version None)
Quarter: 2005Q3

REPORT INFORMATION
  Report Type: 
  Country: None (occurrence: None)
  Receive Date: 20050914
  Receipt Date: 20050430
  Transmission Date: 20060218
  Serious: Yes (Death, Hospitalization)
  Sender: FDA-Public Use
  Company Number: 163-20785-05050034

PATIENT
  Age: 58 Year
  Sex: Male
  Weight: 96.1 kg

DRUGS (1)
  1. THALOMID [Suspect]
     Indication: HEPATIC NEOPLASM MALIGNANT
     Dosage: 200 MG, AT BEDTIME, ORAL
     Route: 048
     Dates: start: 20031016, end: 20031029

REACTIONS (8)
  - ASCITES [None]
  - DEATH [None]
  - GASTROINTESTINAL HAEMORRHAGE [None]
  - LACTIC ACIDOSIS [None]
  - PNEUMONIA KLEBSIELLA [None]
  - PYREXIA [None]
  - RENAL FAILURE [None]
  - SEPSIS [None]
